FAERS Safety Report 8240062-7 (Version None)
Quarter: 2012Q1

REPORT INFORMATION
  Report Type: 
  Country: None (occurrence: None)
  Receive Date: 20120328
  Receipt Date: 20120326
  Transmission Date: 20120608
  Serious: Yes (Death, Hospitalization)
  Sender: FDA-Public Use
  Company Number: JP-BAYER-2012-029271

PATIENT
  Age: 70 Year
  Sex: Male

DRUGS (2)
  1. NEXAVAR [Suspect]
     Indication: HEPATIC NEOPLASM MALIGNANT
     Dosage: 400 MG, BID
     Route: 048
     Dates: start: 20111125, end: 20111206
  2. NEXAVAR [Suspect]
     Dosage: 600 MG, QD
     Route: 048
     Dates: start: 20111207, end: 20111214

REACTIONS (8)
  - HEPATIC FUNCTION ABNORMAL [None]
  - DYSPNOEA [None]
  - PAIN [None]
  - DECREASED APPETITE [None]
  - RESPIRATORY DISORDER [None]
  - HYPERTENSION [None]
  - HEPATIC NEOPLASM MALIGNANT [None]
  - PLEURAL EFFUSION [None]
